FAERS Safety Report 4520271-0 (Version None)
Quarter: 2004Q4

REPORT INFORMATION
  Report Type: 
  Country: None (occurrence: None)
  Receive Date: 20041022
  Receipt Date: 20040227
  Transmission Date: 20050328
  Serious: Yes (Life-Threatening, Hospitalization, Disabling)
  Sender: FDA-Public Use
  Company Number: APP200400223

PATIENT
  Age: 68 Year
  Sex: Female

DRUGS (5)
  1. GENTAMICIN [Suspect]
     Indication: ENDOCARDITIS
     Dosage: (,1 IN 24 HR), INTRAVENOUS
     Route: 042
     Dates: start: 20031110, end: 20031211
  2. GENTAMICIN [Suspect]
     Indication: ENDOCARDITIS
     Dosage: (,1 IN 24 HR), INTRAVENOUS
     Route: 042
     Dates: start: 20031211, end: 20031216
  3. VANCOMYCIN HYDROCHLORIDE [Suspect]
     Indication: ENDOCARDITIS
     Dosage: 1 GM (1 GM, 1 IN 24 HR), INTRAVENOUS; 1 GM (1 GM, 1 IN 72 HR), INTRAVENOUS
     Route: 042
     Dates: start: 20031110, end: 20031211
  4. VANCOMYCIN HYDROCHLORIDE [Suspect]
     Indication: ENDOCARDITIS
     Dosage: 1 GM (1 GM, 1 IN 24 HR), INTRAVENOUS; 1 GM (1 GM, 1 IN 72 HR), INTRAVENOUS
     Route: 042
     Dates: start: 20031211, end: 20031216
  5. NAPROXEN [Concomitant]

REACTIONS (4)
  - DIZZINESS [None]
  - FEELING ABNORMAL [None]
  - PRURITUS [None]
  - RENAL FAILURE ACUTE [None]
